FAERS Safety Report 4428120-6 (Version None)
Quarter: 2004Q3

REPORT INFORMATION
  Report Type: 
  Country: None (occurrence: None)
  Receive Date: 20040726
  Receipt Date: 20040220
  Transmission Date: 20050211
  Serious: No
  Sender: FDA-Public Use
  Company Number: USA030742220

PATIENT
  Age: 77 Year
  Sex: Female
  Weight: 42 kg

DRUGS (2)
  1. FORTEO [Suspect]
     Indication: PELVIC FRACTURE
     Dates: start: 20030718
  2. LOVASTATIN [Concomitant]

REACTIONS (2)
  - DIZZINESS [None]
  - INJECTION SITE PAIN [None]
